FAERS Safety Report 8335917-9 (Version None)
Quarter: 2012Q2

REPORT INFORMATION
  Report Type: 
  Country: None (occurrence: None)
  Receive Date: 20120504
  Receipt Date: 20120501
  Transmission Date: 20120825
  Serious: No
  Sender: FDA-Public Use
  Company Number: US-PFIZER INC-2012106932

PATIENT
  Age: 73 Year
  Sex: Male

DRUGS (8)
  1. BENAZEPRIL [Concomitant]
     Dosage: UNK
  2. CALCIUM [Concomitant]
     Dosage: UNK
  3. DILTIAZEM [Concomitant]
     Dosage: UNK
  4. VITAMIN D [Concomitant]
     Dosage: UNK
  5. LANTUS [Concomitant]
     Dosage: UNK
  6. SUTENT [Suspect]
     Indication: RENAL CANCER
     Dosage: 50 MG, 1X/DAY
     Route: 048
  7. CLONIDINE [Concomitant]
     Dosage: UNK
  8. GLIMEPIRIDE [Concomitant]
     Dosage: UNK

REACTIONS (2)
  - GLOSSODYNIA [None]
  - THROAT IRRITATION [None]
